FAERS Safety Report 10486793 (Version 3)
Quarter: 2016Q4

REPORT INFORMATION
  Report Type: Spontaneous
  Country: US (occurrence: US)
  Receive Date: 20141001
  Receipt Date: 20161216
  Transmission Date: 20170206
  Serious: Yes (Hospitalization, Disabling, Other)
  Sender: FDA-Public Use
  Company Number: US-009507513-1409USA015017

PATIENT
  Sex: Female
  Weight: 63.49 kg

DRUGS (4)
  1. FOSAMAX [Suspect]
     Active Substance: ALENDRONATE SODIUM
     Indication: OSTEOPENIA
     Dosage: 70 MG, UNK
     Route: 048
     Dates: start: 2007, end: 20130523
  2. FOSAMAX PLUS D [Suspect]
     Active Substance: ALENDRONATE SODIUM\CHOLECALCIFEROL
     Indication: OSTEOPOROSIS
     Dosage: 70 MG/2800 IU, QW
     Route: 048
     Dates: start: 20070926, end: 2009
  3. FOSAMAX [Suspect]
     Active Substance: ALENDRONATE SODIUM
     Indication: OSTEOPOROSIS
  4. ALENDRONATE SODIUM. [Suspect]
     Active Substance: ALENDRONATE SODIUM
     Indication: OSTEOPOROSIS
     Dosage: 70 MG, QW
     Route: 048
     Dates: start: 20090210, end: 20130523

REACTIONS (14)
  - Arthralgia [Unknown]
  - Morton^s neuralgia [Unknown]
  - Appendicectomy [Unknown]
  - Back pain [Unknown]
  - Nausea [Recovered/Resolved]
  - Femur fracture [Recovering/Resolving]
  - Thyroid mass [Unknown]
  - Osteopenia [Unknown]
  - Low turnover osteopathy [Unknown]
  - Hypertension [Unknown]
  - Type 2 diabetes mellitus [Unknown]
  - Lung neoplasm malignant [Unknown]
  - Arthralgia [Unknown]
  - Tonsillectomy [Unknown]

NARRATIVE: CASE EVENT DATE: 20070426
